FAERS Safety Report 25272330 (Version 3)
Quarter: 2025Q2

REPORT INFORMATION
  Report Type: Report from Study
  Country: CA (occurrence: CA)
  Receive Date: 20250506
  Receipt Date: 20250630
  Transmission Date: 20250716
  Serious: Yes (Other)
  Sender: TAKEDA
  Company Number: CA-TAKEDA-2025TUS042049

PATIENT
  Age: 39 Year
  Sex: Male

DRUGS (4)
  1. VEDOLIZUMAB [Suspect]
     Active Substance: VEDOLIZUMAB
     Indication: Colitis ulcerative
  2. VEDOLIZUMAB [Suspect]
     Active Substance: VEDOLIZUMAB
     Dosage: 300 MILLIGRAM, Q4WEEKS
     Dates: start: 20250515
  3. VEDOLIZUMAB [Suspect]
     Active Substance: VEDOLIZUMAB
     Dosage: 300 MILLIGRAM, Q4WEEKS
     Dates: end: 20250612
  4. MESALAMINE [Concomitant]
     Active Substance: MESALAMINE

REACTIONS (11)
  - Rectal haemorrhage [Unknown]
  - Rectal tenesmus [Unknown]
  - Frequent bowel movements [Unknown]
  - Diarrhoea [Unknown]
  - Defaecation urgency [Unknown]
  - Abdominal pain upper [Unknown]
  - Rectal discharge [Unknown]
  - Off label use [Unknown]
  - Treatment failure [Unknown]
  - Flatulence [Unknown]
  - Headache [Unknown]

NARRATIVE: CASE EVENT DATE: 20250515
